FAERS Safety Report 24869975 (Version 1)
Quarter: 2025Q1

REPORT INFORMATION
  Report Type: Spontaneous
  Country: US (occurrence: None)
  Receive Date: 20250117
  Receipt Date: 20250117
  Transmission Date: 20250409
  Serious: Yes (Other)
  Sender: FDA-CTU
  Company Number: None

PATIENT
  Age: 58 Year
  Sex: Female
  Weight: 79.38 kg

DRUGS (1)
  1. XEMBIFY [Suspect]
     Active Substance: HUMAN IMMUNOGLOBULIN G
     Indication: Immunodeficiency
     Dosage: 8 GM WEEKLLY SUBCUTANEOUS
     Route: 058

REACTIONS (5)
  - Recalled product [None]
  - Recalled product administered [None]
  - Injection related reaction [None]
  - Pruritus [None]
  - Swelling [None]

NARRATIVE: CASE EVENT DATE: 20250116
